FAERS Safety Report 14846105 (Version 2)
Quarter: 2018Q2

REPORT INFORMATION
  Report Type: Spontaneous
  Country: SE (occurrence: SE)
  Receive Date: 20180504
  Receipt Date: 20180504
  Transmission Date: 20180711
  Serious: Yes (Hospitalization, Other)
  Sender: FDA-Public Use
  Company Number: PHHY2018SE076523

PATIENT
  Age: 32 Year
  Sex: Female
  Weight: 39 kg

DRUGS (14)
  1. QUETIAPINE. [Suspect]
     Active Substance: QUETIAPINE
     Indication: PRODUCT USED FOR UNKNOWN INDICATION
     Dosage: UNK
     Route: 065
  2. IMOVANE [Suspect]
     Active Substance: ZOPICLONE
     Dosage: 2.5 MG, QD
     Route: 065
     Dates: start: 2009
  3. EFEXOR [Suspect]
     Active Substance: VENLAFAXINE HYDROCHLORIDE
     Indication: MENTAL DISORDER
  4. LYRICA [Suspect]
     Active Substance: PREGABALIN
     Indication: BIPOLAR DISORDER
  5. EFEXOR [Suspect]
     Active Substance: VENLAFAXINE HYDROCHLORIDE
     Indication: DEPRESSION
  6. ZOLOFT [Suspect]
     Active Substance: SERTRALINE HYDROCHLORIDE
     Indication: BURNOUT SYNDROME
     Dosage: UNK
     Route: 065
  7. LYRICA [Suspect]
     Active Substance: PREGABALIN
     Indication: MENTAL DISORDER
  8. EFEXOR [Suspect]
     Active Substance: VENLAFAXINE HYDROCHLORIDE
     Indication: ANXIETY
     Dosage: UNK
     Route: 065
  9. SERTRALINE HYDROCHLORIDE. [Suspect]
     Active Substance: SERTRALINE HYDROCHLORIDE
     Indication: DEPRESSION
     Dosage: UNK
     Route: 065
  10. ATARAX [Suspect]
     Active Substance: HYDROXYZINE HYDROCHLORIDE
     Indication: PRODUCT USED FOR UNKNOWN INDICATION
     Dosage: UNK
     Route: 065
  11. IMOVANE [Suspect]
     Active Substance: ZOPICLONE
     Indication: PRODUCT USED FOR UNKNOWN INDICATION
     Dosage: 7.5 MG, QD (BEFORE BEDTIME)
     Route: 048
     Dates: start: 2009
  12. RITALIN [Suspect]
     Active Substance: METHYLPHENIDATE HYDROCHLORIDE
     Indication: PRODUCT USED FOR UNKNOWN INDICATION
     Dosage: 140 MG, QD
     Route: 048
     Dates: start: 2009
  13. LYRICA [Suspect]
     Active Substance: PREGABALIN
     Indication: DEPRESSION
     Dosage: UNK
     Route: 065
  14. EFEXOR [Suspect]
     Active Substance: VENLAFAXINE HYDROCHLORIDE
     Indication: BIPOLAR DISORDER

REACTIONS (31)
  - Renal disorder [Unknown]
  - Malaise [Unknown]
  - Weight decreased [Unknown]
  - Diplopia [Not Recovered/Not Resolved]
  - Tremor [Unknown]
  - Drug ineffective [Unknown]
  - Dysuria [Not Recovered/Not Resolved]
  - Emotional distress [Unknown]
  - Eating disorder [Not Recovered/Not Resolved]
  - Somnambulism [Recovered/Resolved]
  - Pain [Not Recovered/Not Resolved]
  - Psychiatric symptom [Unknown]
  - Pelvic inflammatory disease [Not Recovered/Not Resolved]
  - Social anxiety disorder [Not Recovered/Not Resolved]
  - Product use in unapproved indication [Unknown]
  - Libido decreased [Not Recovered/Not Resolved]
  - Panic attack [Not Recovered/Not Resolved]
  - Fear [Unknown]
  - Nightmare [Unknown]
  - Disturbance in attention [Unknown]
  - Negative thoughts [Recovered/Resolved]
  - Back pain [Not Recovered/Not Resolved]
  - Rash [Unknown]
  - Tinnitus [Not Recovered/Not Resolved]
  - Burnout syndrome [Unknown]
  - Coeliac disease [Not Recovered/Not Resolved]
  - Depression [Unknown]
  - Gastric disorder [Not Recovered/Not Resolved]
  - Cardiac disorder [Unknown]
  - Nausea [Recovered/Resolved]
  - Arthralgia [Not Recovered/Not Resolved]

NARRATIVE: CASE EVENT DATE: 2000
